FAERS Safety Report 11539104 (Version 1)
Quarter: 2015Q3

REPORT INFORMATION
  Report Type: Spontaneous
  Country: US (occurrence: None)
  Receive Date: 20150922
  Receipt Date: 20150922
  Transmission Date: 20151125
  Serious: Yes (Hospitalization)
  Sender: FDA-Public Use
  Company Number: None

PATIENT
  Age: 68 Year
  Sex: Female

DRUGS (1)
  1. DAKINS QUARTER [Suspect]
     Active Substance: SODIUM HYPOCHLORITE
     Indication: WOUND TREATMENT
     Route: 061
     Dates: start: 20150915

REACTIONS (3)
  - Application site pain [None]
  - Product preparation error [None]
  - Product label confusion [None]

NARRATIVE: CASE EVENT DATE: 20150915
